FAERS Safety Report 6850954 (Version 4)
Quarter: 2013Q3

REPORT INFORMATION
  Report Type: Spontaneous
  Country: US (occurrence: US)
  Receive Date: 20081215
  Receipt Date: 20130906
  Transmission Date: 20140515
  Serious: Yes (Death)
  Sender: FDA-Public Use
  Company Number: US-BAYER-200814796BCC

PATIENT
  Age: 16 Year
  Sex: Female

DRUGS (2)
  1. BACTINE [BENZALKONIUM CHLORIDE,LIDOCAINE HYDROCHLORIDE] [Suspect]
     Indication: EAR PIERCING
     Dosage: 5 OZ BOTTLE
     Route: 048
  2. BACTINE [BENZALKONIUM CHLORIDE,LIDOCAINE HYDROCHLORIDE] [Suspect]
     Indication: SUICIDAL IDEATION
     Dosage: UNK
     Route: 048
     Dates: start: 2008, end: 2008

REACTIONS (4)
  - Toxicity to various agents [Fatal]
  - Completed suicide [Fatal]
  - Overdose [None]
  - Incorrect route of drug administration [None]
